FAERS Safety Report 13604323 (Version 1)
Quarter: 2017Q2

REPORT INFORMATION
  Report Type: Spontaneous
  Country: US (occurrence: US)
  Receive Date: 20170601
  Receipt Date: 20170601
  Transmission Date: 20170830
  Serious: Yes (Other)
  Sender: FDA-Public Use
  Company Number: None

PATIENT
  Age: 69 Year
  Sex: Male
  Weight: 65.3 kg

DRUGS (9)
  1. ATORVASTATIN [Suspect]
     Active Substance: ATORVASTATIN
     Indication: HYPERCHOLESTEROLAEMIA
     Route: 048
     Dates: start: 20170524, end: 20170530
  2. THIAMINE. [Concomitant]
     Active Substance: THIAMINE
  3. CARVEDILOL. [Concomitant]
     Active Substance: CARVEDILOL
  4. FAMOTIDINE. [Concomitant]
     Active Substance: FAMOTIDINE
  5. HEPARIN [Concomitant]
     Active Substance: HEPARIN SODIUM
  6. LEVETIRACETAM. [Concomitant]
     Active Substance: LEVETIRACETAM
  7. FOLIC ACID. [Concomitant]
     Active Substance: FOLIC ACID
  8. ACETAMINOPHEN. [Concomitant]
     Active Substance: ACETAMINOPHEN
  9. ASPIRIN CHEWABLE [Concomitant]
     Active Substance: ASPIRIN

REACTIONS (2)
  - Alanine aminotransferase increased [None]
  - Aspartate aminotransferase increased [None]

NARRATIVE: CASE EVENT DATE: 20170531
